FAERS Safety Report 10884687 (Version 1)
Quarter: 2015Q1

REPORT INFORMATION
  Report Type: Spontaneous
  Country: US (occurrence: None)
  Receive Date: 20150227
  Receipt Date: 20150227
  Transmission Date: 20150721
  Serious: Yes (Hospitalization)
  Sender: FDA-Public Use
  Company Number: None

PATIENT
  Age: 55 Year
  Sex: Male
  Weight: 90.72 kg

DRUGS (5)
  1. VITAMIN D [Concomitant]
     Active Substance: CHOLECALCIFEROL
  2. MULTIPLE VIT C [Concomitant]
  3. FISH OIL [Concomitant]
     Active Substance: FISH OIL
  4. ANDROGEL [Suspect]
     Active Substance: TESTOSTERONE
  5. FORTESTA [Suspect]
     Active Substance: TESTOSTERONE
     Indication: BLOOD TESTOSTERONE DECREASED
     Dosage: DRUG: ANDROGEL?ONCE DAILY, APPLIED TO A SURFACE, USUALLY THE SKIN
     Route: 061
     Dates: start: 20120201, end: 20121031

REACTIONS (4)
  - Myocardial infarction [None]
  - Testicular swelling [None]
  - Pain [None]
  - Prostatic specific antigen increased [None]

NARRATIVE: CASE EVENT DATE: 20120801
